FAERS Safety Report 21406569 (Version 1)
Quarter: 2022Q4

REPORT INFORMATION
  Report Type: Spontaneous
  Country: US (occurrence: US)
  Receive Date: 20221004
  Receipt Date: 20221004
  Transmission Date: 20230113
  Serious: Yes (Hospitalization)
  Sender: FDA-Public Use
  Company Number: US-LUPIN PHARMACEUTICALS INC.-2022-11623

PATIENT
  Age: 35 Year
  Sex: Male

DRUGS (8)
  1. BUPROPION [Suspect]
     Active Substance: BUPROPION
     Indication: Depression
     Dosage: 150 MG, QD
     Route: 065
  2. ZOLPIDEM [Suspect]
     Active Substance: ZOLPIDEM TARTRATE
     Indication: Sleep disorder
     Dosage: 10 MG, PRN AT NIGHT
     Route: 065
  3. LORAZEPAM [Suspect]
     Active Substance: LORAZEPAM
     Indication: Anxiety
     Dosage: 1 MG, PRN, THERAPY CONTINUED AND LATER TAPERED OVER THE COURSE OF 1 WEEK
     Route: 065
  4. LORAZEPAM [Suspect]
     Active Substance: LORAZEPAM
     Dosage: 2 MG
     Route: 065
  5. CLOZAPINE [Concomitant]
     Active Substance: CLOZAPINE
     Indication: Suicidal ideation
     Dosage: UNK
     Route: 065
  6. KETAMINE [Concomitant]
     Active Substance: KETAMINE
     Indication: Depression
     Dosage: UNK, DOSE NOT STATED
     Route: 042
  7. KETAMINE [Concomitant]
     Active Substance: KETAMINE
     Indication: Post-traumatic stress disorder
     Dosage: UNK, KETAMINE USE QUICKLY ESCALATED TO MONTHLY IV INFUSIONS
     Route: 042
  8. KETAMINE [Concomitant]
     Active Substance: KETAMINE
     Dosage: 100 MG, QID
     Route: 048

REACTIONS (1)
  - Drug ineffective [Unknown]
